FAERS Safety Report 4289777-6 (Version None)
Quarter: 2004Q1

REPORT INFORMATION
  Report Type: 
  Country: None (occurrence: None)
  Receive Date: 20040210
  Receipt Date: 20031024
  Transmission Date: 20041129
  Serious: Yes (Other)
  Sender: FDA-Public Use
  Company Number: ES-GLAXOSMITHKLINE-B0313231A

PATIENT
  Age: 22 Year
  Sex: Male

DRUGS (1)
  1. AUGMENTIN '125' [Suspect]
     Dosage: 875MG UNKNOWN
     Route: 065

REACTIONS (5)
  - DYSPHAGIA [None]
  - ENANTHEMA [None]
  - FACE OEDEMA [None]
  - MACROGLOSSIA [None]
  - PHARYNGOLARYNGEAL PAIN [None]
